FAERS Safety Report 18481987 (Version 4)
Quarter: 2020Q4

REPORT INFORMATION
  Report Type: Report from Study
  Country: US (occurrence: US)
  Receive Date: 20201109
  Receipt Date: 20201217
  Transmission Date: 20210114
  Serious: Yes (Other)
  Sender: FDA-Public Use
  Company Number: NVSC2020US295877

PATIENT
  Sex: Male

DRUGS (2)
  1. WATER PILLS [Concomitant]
     Active Substance: UNSPECIFIED INGREDIENT
     Indication: PRODUCT USED FOR UNKNOWN INDICATION
     Dosage: UNK
     Route: 065
  2. ENTRESTO [Suspect]
     Active Substance: SACUBITRIL\VALSARTAN
     Indication: PRODUCT USED FOR UNKNOWN INDICATION
     Dosage: 1 DF, BID (49/51MG)
     Route: 048
     Dates: start: 2017

REACTIONS (9)
  - Abdominal discomfort [Unknown]
  - Dry skin [Unknown]
  - Nasopharyngitis [Unknown]
  - Arrhythmia [Unknown]
  - Dizziness [Unknown]
  - Cough [Unknown]
  - Insomnia [Unknown]
  - Hepatic function abnormal [Unknown]
  - Renal disorder [Unknown]

NARRATIVE: CASE EVENT DATE: 2017
